FAERS Safety Report 13869818 (Version 1)
Quarter: 2017Q3

REPORT INFORMATION
  Report Type: Spontaneous
  Country: US (occurrence: US)
  Receive Date: 20170815
  Receipt Date: 20170815
  Transmission Date: 20171127
  Serious: Yes (Other)
  Sender: FDA-Public Use
  Company Number: US-ELI_LILLY_AND_COMPANY-US201708003081

PATIENT
  Age: 75 Year
  Sex: Female

DRUGS (2)
  1. FORTEO [Suspect]
     Active Substance: TERIPARATIDE
     Indication: OSTEOPOROSIS
     Dosage: UNK, UNKNOWN
     Route: 065
     Dates: start: 201606
  2. FORTEO [Suspect]
     Active Substance: TERIPARATIDE
     Dosage: UNK, UNKNOWN
     Route: 065
     Dates: start: 201606

REACTIONS (6)
  - Injury associated with device [Unknown]
  - Chronic kidney disease [Unknown]
  - Hypertension [Unknown]
  - Drug dose omission [Recovered/Resolved]
  - Breast cancer [Recovered/Resolved]
  - Ankle fracture [Recovering/Resolving]

NARRATIVE: CASE EVENT DATE: 2016
